FAERS Safety Report 6241864-9 (Version None)
Quarter: 2009Q2

REPORT INFORMATION
  Report Type: 
  Country: None (occurrence: None)
  Receive Date: 20090623
  Receipt Date: 20090611
  Transmission Date: 20091009
  Serious: Yes (Other)
  Sender: FDA-Public Use
  Company Number: US-PFIZER INC-2009226401

PATIENT

DRUGS (1)
  1. ZYVOX [Suspect]

REACTIONS (1)
  - FRACTURE [None]
